FAERS Safety Report 5892279-4 (Version None)
Quarter: 2008Q3

REPORT INFORMATION
  Report Type: 
  Country: None (occurrence: None)
  Receive Date: 20080919
  Receipt Date: 20080909
  Transmission Date: 20090109
  Serious: Yes (Life-Threatening, Hospitalization)
  Sender: FDA-Public Use
  Company Number: 238597J08USA

PATIENT
  Age: 66 Year
  Sex: Female

DRUGS (5)
  1. REBIF [Suspect]
     Indication: MULTIPLE SCLEROSIS
     Dosage: 44 MCG, 3 IN 1 WEEKS, SUBCUTANEOUS
     Route: 058
     Dates: start: 20060101, end: 20080101
  2. DETROL [Concomitant]
  3. PROVIGIL [Concomitant]
  4. BACLOFEN [Concomitant]
  5. METHOTREXATE (METHOTREXATE /00113801/) [Concomitant]

REACTIONS (7)
  - ABDOMINAL DISTENSION [None]
  - APPARENT DEATH [None]
  - DECUBITUS ULCER [None]
  - HAEMATEMESIS [None]
  - HAEMOGLOBIN DECREASED [None]
  - NON-HODGKIN'S LYMPHOMA [None]
  - PYREXIA [None]
